FAERS Safety Report 8465433-5 (Version None)
Quarter: 2012Q2

REPORT INFORMATION
  Report Type: 
  Country: None (occurrence: None)
  Receive Date: 20120626
  Receipt Date: 20120619
  Transmission Date: 20120825
  Serious: Yes (Hospitalization, Other)
  Sender: FDA-Public Use
  Company Number: PHEH2012US010721

PATIENT
  Sex: Female

DRUGS (12)
  1. PROZAC [Concomitant]
     Dosage: 40 MG, DAILY
     Route: 048
  2. DOLOPHINE HCL [Concomitant]
     Dosage: 10 MG, TID IN MORNING, AFTERNOON AND EVENING
     Route: 048
  3. GILENYA [Suspect]
     Indication: MULTIPLE SCLEROSIS
     Dosage: 0.5 MG, QD
     Route: 048
     Dates: start: 20111207, end: 20120412
  4. NORCO [Concomitant]
     Indication: PAIN
     Dosage: 1 DF, Q4H
     Route: 048
  5. NOLVADEX [Concomitant]
     Dosage: 20 MG, DAILY
     Route: 048
  6. ULTRAM [Concomitant]
     Indication: PAIN
     Dosage: 50 MG, Q6H
     Route: 048
  7. KLONOPIN [Concomitant]
     Indication: SLEEP DISORDER
     Dosage: 0.5 MG, UNK
     Route: 048
  8. COLACE [Concomitant]
     Dosage: 100 MG, BID
     Route: 048
  9. KEFLEX [Concomitant]
     Dosage: 500 MG, TID
     Route: 048
  10. ASPIRIN [Concomitant]
     Dosage: 81 MG, DAILY
     Route: 048
  11. LIORESAL [Concomitant]
     Dosage: 10 MG, TID
     Route: 048
  12. ATIVAN [Concomitant]
     Indication: SLEEP DISORDER
     Dosage: 1 MG, PRN, AT BEDTIME
     Route: 048

REACTIONS (15)
  - THYROID NEOPLASM [None]
  - NAUSEA [None]
  - PNEUMONIA [None]
  - FALL [None]
  - HEADACHE [None]
  - ANXIETY [None]
  - HYPERACUSIS [None]
  - PHOTOPHOBIA [None]
  - MOOD ALTERED [None]
  - HEAD DISCOMFORT [None]
  - GASTROOESOPHAGEAL REFLUX DISEASE [None]
  - IRON DEFICIENCY ANAEMIA [None]
  - BREAST CANCER [None]
  - MIGRAINE [None]
  - DEPRESSION [None]
